FAERS Safety Report 8614730-9 (Version None)
Quarter: 2012Q3

REPORT INFORMATION
  Report Type: 
  Country: None (occurrence: None)
  Receive Date: 20120810
  Receipt Date: 20120731
  Transmission Date: 20120928
  Serious: Yes (Other)
  Sender: FDA-Public Use
  Company Number: US-1193486

PATIENT

DRUGS (3)
  1. TRIESENCE [Suspect]
     Indication: PROPHYLAXIS
     Dosage: (4 MG TOTAL INTRAOCULAR)
     Route: 031
  2. GENTAMICIN (NONE) [Suspect]
     Dosage: (20 MG QD SUBCONJUNCTIVAL)
     Route: 057
  3. DEXAMETHASONE (NONE) [Suspect]
     Dosage: (4 MG QD SUBCONJUNCTIVAL)
     Route: 057

REACTIONS (2)
  - INTRAOCULAR PRESSURE INCREASED [None]
  - OCULAR HYPERTENSION [None]
